FAERS Safety Report 5824088-6 (Version None)
Quarter: 2008Q3

REPORT INFORMATION
  Report Type: 
  Country: None (occurrence: None)
  Receive Date: 20080722
  Receipt Date: 20080708
  Transmission Date: 20090109
  Serious: Yes (Disabling)
  Sender: FDA-Public Use
  Company Number: 2008BI017570

PATIENT
  Age: 60 Year
  Sex: Female

DRUGS (14)
  1. TYSABRI [Suspect]
     Indication: MULTIPLE SCLEROSIS
     Dosage: 300 MG; QM; IV
     Route: 042
     Dates: start: 20071102
  2. ILEX-ONE [Concomitant]
  3. AQUAMEN [Concomitant]
  4. BISOHEXAL [Concomitant]
  5. PANTOPRAZOLE SODIUM [Concomitant]
  6. CYTOTEC [Concomitant]
  7. DRIDASE [Concomitant]
  8. PLAVIX [Concomitant]
  9. SIMVAHEXAL [Concomitant]
  10. CARBAMAZEPINE [Concomitant]
  11. LIORESAL [Concomitant]
  12. AVONEX [Concomitant]
  13. NOVANTRONE [Concomitant]
  14. REBIF [Concomitant]

REACTIONS (2)
  - FEMORAL NECK FRACTURE [None]
  - OSTEOPOROSIS [None]
